FAERS Safety Report 21520997 (Version 1)
Quarter: 2022Q4

REPORT INFORMATION
  Report Type: Report from Study
  Country: US (occurrence: US)
  Receive Date: 20221028
  Receipt Date: 20221028
  Transmission Date: 20230113
  Serious: No
  Sender: FDA-Public Use
  Company Number: US-ABBVIE-4176329

PATIENT
  Sex: Female

DRUGS (1)
  1. IMBRUVICA [Suspect]
     Active Substance: IBRUTINIB
     Indication: B-cell small lymphocytic lymphoma
     Route: 048

REACTIONS (9)
  - Alopecia [Unknown]
  - Arrhythmia [Unknown]
  - Joint swelling [Unknown]
  - Contusion [Unknown]
  - Rash [Unknown]
  - Onychoclasis [Unknown]
  - Tachycardia [Unknown]
  - Arthralgia [Unknown]
  - Iron deficiency [Unknown]
